FAERS Safety Report 6161482-0 (Version None)
Quarter: 2009Q2

REPORT INFORMATION
  Report Type: 
  Country: None (occurrence: None)
  Receive Date: 20090417
  Receipt Date: 20090408
  Transmission Date: 20091009
  Serious: Yes (Death)
  Sender: FDA-Public Use
  Company Number: 2009AL002026

PATIENT
  Age: 64 Year
  Sex: Male

DRUGS (1)
  1. DIGOXIN [Suspect]
     Indication: ATRIAL FIBRILLATION
     Dosage: 0.25MG, PO
     Route: 048

REACTIONS (9)
  - ANHEDONIA [None]
  - ARRHYTHMIA [None]
  - HYPERTENSIVE HEART DISEASE [None]
  - ILL-DEFINED DISORDER [None]
  - MENTAL DISORDER [None]
  - MULTIPLE INJURIES [None]
  - MYOCARDIAL ISCHAEMIA [None]
  - PAIN [None]
  - THERAPEUTIC AGENT TOXICITY [None]
